FAERS Safety Report 7036353-8 (Version None)
Quarter: 2010Q4

REPORT INFORMATION
  Report Type: 
  Country: None (occurrence: None)
  Receive Date: 20101008
  Receipt Date: 20101001
  Transmission Date: 20110411
  Serious: Yes (Other)
  Sender: FDA-Public Use
  Company Number: US-AMGEN-QUU438891

PATIENT
  Age: 52 Year
  Sex: Female
  Weight: 155.7 kg

DRUGS (10)
  1. NPLATE [Suspect]
     Indication: IDIOPATHIC THROMBOCYTOPENIC PURPURA
     Route: 058
     Dates: start: 20100112, end: 20100909
  2. SINGULAIR [Concomitant]
  3. CLARITIN [Concomitant]
  4. LISINOPRIL [Concomitant]
     Route: 048
  5. GLYBURIDE [Concomitant]
  6. METFORMIN [Concomitant]
  7. XANAX [Concomitant]
     Route: 048
  8. ASPIRIN [Concomitant]
     Route: 048
  9. PREVACID [Concomitant]
     Route: 048
  10. ACTOS [Concomitant]
     Route: 048

REACTIONS (2)
  - BONE MARROW DISORDER [None]
  - THERAPEUTIC RESPONSE DECREASED [None]
